FAERS Safety Report 21811403 (Version 2)
Quarter: 2023Q1

REPORT INFORMATION
  Report Type: Report from Study
  Country: CH (occurrence: CH)
  Receive Date: 20230103
  Receipt Date: 20230216
  Transmission Date: 20230418
  Serious: Yes (Other)
  Sender: FDA-Public Use
  Company Number: CH-PFM-2021-08508

PATIENT
  Age: 73 Year
  Sex: Male

DRUGS (8)
  1. ENCORAFENIB [Suspect]
     Active Substance: ENCORAFENIB
     Indication: Malignant melanoma
     Dosage: 450 MG, 1 X PER DAY
     Route: 048
     Dates: start: 20200724, end: 20201102
  2. ENCORAFENIB [Suspect]
     Active Substance: ENCORAFENIB
     Dosage: 450 MG, 1 X PER DAY
     Route: 048
     Dates: start: 20201104
  3. ENCORAFENIB [Suspect]
     Active Substance: ENCORAFENIB
     Dosage: 300 MG, 1 X PER DAY
     Route: 048
     Dates: start: 20201117
  4. ENCORAFENIB [Suspect]
     Active Substance: ENCORAFENIB
     Dosage: 75 MG 6X PER DAY
     Route: 048
     Dates: start: 20220516
  5. BINIMETINIB [Suspect]
     Active Substance: BINIMETINIB
     Indication: Malignant melanoma
     Dosage: 45 MG, 2 X PER DAY
     Route: 048
     Dates: start: 20200724, end: 20201102
  6. BINIMETINIB [Suspect]
     Active Substance: BINIMETINIB
     Dosage: 45 MG, 2 X PER DAY
     Route: 048
     Dates: start: 20201104, end: 20201117
  7. BINIMETINIB [Suspect]
     Active Substance: BINIMETINIB
     Dosage: 30 MG, 2 X PER DAY
     Route: 048
     Dates: start: 20201127
  8. LEVOTHYROXINE [Concomitant]
     Active Substance: LEVOTHYROXINE
     Dosage: UNK
     Route: 065
     Dates: start: 20201102

REACTIONS (2)
  - Adrenal insufficiency [Recovered/Resolved]
  - Dizziness [Recovered/Resolved]

NARRATIVE: CASE EVENT DATE: 20201102
